FAERS Safety Report 12619051 (Version 3)
Quarter: 2016Q3

REPORT INFORMATION
  Report Type: Spontaneous
  Country: BR (occurrence: BR)
  Receive Date: 20160803
  Receipt Date: 20160826
  Transmission Date: 20161109
  Serious: Yes (Other)
  Sender: FDA-Public Use
  Company Number: PHHY2016BR105181

PATIENT
  Age: 90 Year
  Sex: Male

DRUGS (1)
  1. EXELON PATCH [Suspect]
     Active Substance: RIVASTIGMINE
     Indication: SENILE DEMENTIA
     Dosage: 4.6 MG (PATCH: 9 MG/5 CM2, 30 PATCHES), QD
     Route: 062

REACTIONS (16)
  - Constipation [Recovering/Resolving]
  - Oral discharge [Recovering/Resolving]
  - Urinary incontinence [Not Recovered/Not Resolved]
  - Dyspnoea [Recovering/Resolving]
  - Fatigue [Unknown]
  - Saliva altered [Recovering/Resolving]
  - Feeding disorder [Recovered/Resolved]
  - Memory impairment [Recovering/Resolving]
  - Aphasia [Unknown]
  - Product use issue [Unknown]
  - Muscular weakness [Recovering/Resolving]
  - Abasia [Recovering/Resolving]
  - Dementia [Recovering/Resolving]
  - Dysarthria [Recovering/Resolving]
  - Hallucination [Recovering/Resolving]
  - Fall [Unknown]

NARRATIVE: CASE EVENT DATE: 20160807
